FAERS Safety Report 23472435 (Version 2)
Quarter: 2024Q1

REPORT INFORMATION
  Report Type: Spontaneous
  Country: US (occurrence: US)
  Receive Date: 20240202
  Receipt Date: 20240311
  Transmission Date: 20240410
  Serious: No
  Sender: FDA-Public Use
  Company Number: US-PFIZER INC-202300097135

PATIENT
  Age: 74 Year
  Sex: Female
  Weight: 58.957 kg

DRUGS (2)
  1. IBRANCE [Suspect]
     Active Substance: PALBOCICLIB
     Indication: Metastatic neoplasm
     Dosage: 125 MG FOR 21 DAYS THEN 7 DAYS OFF, AND THEN STARTS AGAIN
     Route: 048
     Dates: start: 201910
  2. FASLODEX [Concomitant]
     Active Substance: FULVESTRANT
     Dosage: UNK
     Dates: start: 201912

REACTIONS (3)
  - Dysphonia [Recovered/Resolved]
  - Speech disorder [Recovered/Resolved]
  - Inappropriate schedule of product administration [Unknown]
